FAERS Safety Report 10477762 (Version 3)
Quarter: 2015Q1

REPORT INFORMATION
  Report Type: Spontaneous
  Country: None (occurrence: None)
  Receive Date: 20140924
  Receipt Date: 20150121
  Transmission Date: 20150720
  Serious: Yes (Hospitalization)
  Sender: FDA-Public Use
  Company Number: 2014090047

PATIENT
  Age: 74 Year
  Sex: Female
  Weight: 55 kg

DRUGS (9)
  1. ATENOLOL. [Concomitant]
     Active Substance: ATENOLOL
  2. SEROQUEL [Concomitant]
     Active Substance: QUETIAPINE FUMARATE
  3. TOREM [Suspect]
     Active Substance: TORSEMIDE
     Dates: start: 20131225, end: 20131228
  4. GLUTRIL (GLIBORNURIDE) [Concomitant]
  5. PANTOZOL [Concomitant]
     Active Substance: PANTOPRAZOLE SODIUM
  6. SIMCORA (SIMVASTATIN) [Concomitant]
  7. XARELTO [Concomitant]
     Active Substance: RIVAROXABAN
  8. DIOVAN [Concomitant]
     Active Substance: VALSARTAN
  9. GLUCOPHAGE [Concomitant]
     Active Substance: METFORMIN HYDROCHLORIDE

REACTIONS (10)
  - Eye disorder [None]
  - Accidental overdose [None]
  - Abdominal pain [None]
  - Drug dispensing error [None]
  - Renal disorder [None]
  - Hyponatraemia [None]
  - Incorrect dose administered [None]
  - Dizziness [None]
  - Acute kidney injury [None]
  - Feeling abnormal [None]

NARRATIVE: CASE EVENT DATE: 201312
